FAERS Safety Report 17353340 (Version 2)
Quarter: 2020Q1

REPORT INFORMATION
  Report Type: Spontaneous
  Country: JP (occurrence: JP)
  Receive Date: 20200131
  Receipt Date: 20200228
  Transmission Date: 20200409
  Serious: Yes (Other)
  Sender: FDA-Public Use
  Company Number: JP-ORION CORPORATION ORION PHARMA-ENTC2020-0015

PATIENT
  Age: 73 Year
  Sex: Female

DRUGS (1)
  1. STALEVO [Suspect]
     Active Substance: CARBIDOPA\ENTACAPONE\LEVODOPA
     Indication: PARKINSON^S DISEASE
     Dosage: LEVODOPA: 100 MG / CARBIDOPA: 10.8 MG / ENTACAPONE 100 MG
     Route: 048

REACTIONS (2)
  - Speech disorder [Unknown]
  - Hallucinations, mixed [Unknown]
